FAERS Safety Report 7815142-8 (Version None)
Quarter: 2011Q4

REPORT INFORMATION
  Report Type: 
  Country: None (occurrence: None)
  Receive Date: 20111014
  Receipt Date: 20111014
  Transmission Date: 20120403
  Serious: No
  Sender: FDA-Public Use
  Company Number: None

PATIENT
  Age: 32 Year
  Sex: Male
  Weight: 90.718 kg

DRUGS (1)
  1. OXCARBAZEPINE [Suspect]
     Dosage: 1200MG
     Route: 048

REACTIONS (1)
  - HYPONATRAEMIA [None]
